FAERS Safety Report 13640215 (Version 3)
Quarter: 2017Q3

REPORT INFORMATION
  Report Type: Spontaneous
  Country: SE (occurrence: SE)
  Receive Date: 20170609
  Receipt Date: 20170721
  Transmission Date: 20171127
  Serious: Yes (Life-Threatening, Hospitalization, Other)
  Sender: FDA-Public Use
  Company Number: SE-AMGEN-SWESP2017088199

PATIENT
  Age: 53 Year
  Sex: Female
  Weight: 72 kg

DRUGS (19)
  1. POMALIDOMIDE [Concomitant]
     Active Substance: POMALIDOMIDE
     Indication: PLASMA CELL MYELOMA
     Dosage: UNK
     Dates: start: 201610
  2. IMODIUM [Concomitant]
     Active Substance: LOPERAMIDE HYDROCHLORIDE
     Dosage: 2 MG, AS NECESSARY 1 TABLET 4 TIMES DAILY
  3. KYPROLIS [Suspect]
     Active Substance: CARFILZOMIB
     Indication: PLASMA CELL MYELOMA
     Dosage: 20 MG/M2, (TOTALLY 60 MG PER INFUSION) 2 DOSES PER WEEK FOR 3 WEEKS, 1 WEEK REST
     Route: 042
     Dates: start: 20160531, end: 20170427
  4. FARYDAK [Concomitant]
     Active Substance: PANOBINOSTAT
     Dosage: UNK
  5. PREDNISOLONE. [Concomitant]
     Active Substance: PREDNISOLONE
     Dosage: 5 MG, QD (1 TABLET)
  6. GAVISCON [Concomitant]
     Active Substance: ALUMINUM HYDROXIDE\MAGNESIUM CARBONATE
     Dosage: 20 ML, AS NECESSARY (AT NIGHT)
  7. DEXAMETHASONE. [Concomitant]
     Active Substance: DEXAMETHASONE
     Indication: PLASMA CELL MYELOMA
     Dosage: UNK
     Dates: start: 201610
  8. ESOMEPRAZOLE [Concomitant]
     Active Substance: ESOMEPRAZOLE
     Dosage: 40 MG, QD (1 TABLET)
  9. LUNELAX [Concomitant]
     Active Substance: PLANTAGO OVATA LEAF
     Dosage: UNK (1 DOSE SACHET IN THE MORNING AND 1 IN THE EVENING)
  10. PENTACARINAT [Concomitant]
     Active Substance: PENTAMIDINE ISETHIONATE
     Dosage: 300 MG, Q4WK
  11. EMGESAN [Concomitant]
     Dosage: 250 MG, QD (1 TABLET)
  12. OXASCAND [Concomitant]
     Active Substance: OXAZEPAM
     Dosage: 15 MG, AS NECESSARY (1-2 TABLETS 3 TIMES DAILY)
  13. ALVEDON [Concomitant]
     Active Substance: ACETAMINOPHEN
     Dosage: 665 MG, AS NECESSARY (2 TABLETS)
  14. PROPYLESS [Concomitant]
     Dosage: UNK UNK, AS NECESSARY  (1 APPLICATION BID)
  15. ACYCLOVIR. [Concomitant]
     Active Substance: ACYCLOVIR
     Dosage: 400 MG, BID (1 TABLET)
  16. KALEORID [Concomitant]
     Active Substance: POTASSIUM CHLORIDE
     Dosage: 750 MG, BID (1 TABLET)
  17. IMOVANE [Concomitant]
     Active Substance: ZOPICLONE
     Dosage: 7.5 MG, AS NECESSARY (1 TABLET AT NIGHT AS NEEDED)
  18. IMNOVID [Concomitant]
     Active Substance: POMALIDOMIDE
     Indication: PLASMA CELL MYELOMA
     Dosage: 4 MG, (1 X 1 FOR 3 WEEKS, 1 WEEK REST)
     Dates: start: 20161017, end: 20170427
  19. AMLODIPINE [Concomitant]
     Active Substance: AMLODIPINE BESYLATE
     Dosage: 5 MG, QD (1 TABLET)

REACTIONS (3)
  - Posterior reversible encephalopathy syndrome [Recovered/Resolved]
  - Cerebral ischaemia [Unknown]
  - Plasma cell myeloma [Unknown]

NARRATIVE: CASE EVENT DATE: 201704
